FAERS Safety Report 6241277-X (Version None)
Quarter: 2009Q2

REPORT INFORMATION
  Report Type: 
  Country: None (occurrence: None)
  Receive Date: 20090619
  Receipt Date: 20090619
  Transmission Date: 20091009
  Serious: Yes (Other)
  Sender: FDA-Public Use
  Company Number: None

PATIENT
  Age: 64 Year
  Sex: Male
  Weight: 86.1834 kg

DRUGS (1)
  1. FLOMAX [Suspect]
     Indication: DYSURIA
     Dosage: 1 PER DAY PO
     Route: 048
     Dates: start: 20090508, end: 20090513

REACTIONS (7)
  - DIZZINESS [None]
  - EJACULATION DISORDER [None]
  - INFLUENZA LIKE ILLNESS [None]
  - NASAL CONGESTION [None]
  - RHINORRHOEA [None]
  - SINUS DISORDER [None]
  - VISION BLURRED [None]
